FAERS Safety Report 24165779 (Version 1)
Quarter: 2024Q3

REPORT INFORMATION
  Report Type: Spontaneous
  Country: FR (occurrence: FR)
  Receive Date: 20240802
  Receipt Date: 20240802
  Transmission Date: 20241016
  Serious: Yes (Other)
  Sender: ROCHE
  Company Number: FR-ROCHE-10000029742

PATIENT
  Age: 43 Year
  Sex: Female

DRUGS (4)
  1. AVASTIN [Suspect]
     Active Substance: BEVACIZUMAB
     Indication: Metastases to bone
     Route: 065
  2. ROFERON-A [Suspect]
     Active Substance: INTERFERON ALFA-2A
     Indication: Product used for unknown indication
     Route: 065
  3. ZOMETA [Suspect]
     Active Substance: ZOLEDRONIC ACID
     Indication: Product used for unknown indication
     Route: 065
  4. AMITRIPTYLINE [Concomitant]
     Active Substance: AMITRIPTYLINE

REACTIONS (5)
  - Tooth extraction [Unknown]
  - Carcinoid tumour pulmonary [Unknown]
  - Osteonecrosis [Unknown]
  - Phlebitis infective [Unknown]
  - Toothache [Unknown]

NARRATIVE: CASE EVENT DATE: 20051201
